FAERS Safety Report 10598503 (Version 1)
Quarter: 2014Q4

REPORT INFORMATION
  Report Type: Spontaneous
  Country: IT (occurrence: None)
  Receive Date: 20141119
  Receipt Date: 20141119
  Transmission Date: 20150529
  Serious: Yes (Other)
  Sender: FDA-Public Use
  Company Number: 2620496

PATIENT
  Age: 59 Year
  Sex: Female
  Weight: 55 kg

DRUGS (1)
  1. DOCETAXEL. [Suspect]
     Active Substance: DOCETAXEL
     Indication: PRODUCT USED FOR UNKNOWN INDICATION
     Dosage: CYCLICAL, (NOT OTHERWISE SPECIFIED)
     Route: 042
     Dates: start: 20141007, end: 20141020

REACTIONS (3)
  - Hypersensitivity [None]
  - Erythema [None]
  - Malaise [None]

NARRATIVE: CASE EVENT DATE: 20141020
